FAERS Safety Report 7403456-5 (Version None)
Quarter: 2011Q2

REPORT INFORMATION
  Report Type: 
  Country: None (occurrence: None)
  Receive Date: 20110408
  Receipt Date: 20110329
  Transmission Date: 20111010
  Serious: Yes (Death)
  Sender: FDA-Public Use
  Company Number: B0703511A

PATIENT
  Sex: Female
  Weight: 80 kg

DRUGS (2)
  1. LOVENOX [Suspect]
     Dosage: 1INJ TWICE PER DAY
     Route: 058
     Dates: start: 20110114, end: 20110120
  2. ARIXTRA [Suspect]
     Indication: ATRIAL FIBRILLATION
     Dosage: 7.5MG PER DAY
     Route: 058
     Dates: start: 20110121, end: 20110123

REACTIONS (5)
  - SHOCK HAEMORRHAGIC [None]
  - MULTI-ORGAN FAILURE [None]
  - OFF LABEL USE [None]
  - HAEMOGLOBIN DECREASED [None]
  - RETROPERITONEAL HAEMATOMA [None]
